FAERS Safety Report 7765423-1 (Version None)
Quarter: 2011Q3

REPORT INFORMATION
  Report Type: 
  Country: None (occurrence: None)
  Receive Date: 20110916
  Receipt Date: 20110907
  Transmission Date: 20111222
  Serious: Yes (Hospitalization)
  Sender: FDA-Public Use
  Company Number: 2011HGS-002497

PATIENT
  Age: 30 Year
  Sex: Male

DRUGS (5)
  1. BENLYSTA [Suspect]
     Indication: SYSTEMIC LUPUS ERYTHEMATOSUS
     Dosage: 10 MG/KG, 1 IN 2 WK, INTRAVENOUS
     Route: 042
     Dates: start: 20110826, end: 20110826
  2. TRAMADOL HCL [Concomitant]
  3. PLAQUENIL [Concomitant]
  4. PREDNISONE [Concomitant]
  5. LYRICA [Concomitant]

REACTIONS (5)
  - CHEST DISCOMFORT [None]
  - DYSPNOEA [None]
  - DEPRESSION [None]
  - OXYGEN SATURATION DECREASED [None]
  - DEPRESSED MOOD [None]
